FAERS Safety Report 12752407 (Version 1)
Quarter: 2016Q3

REPORT INFORMATION
  Report Type: Spontaneous
  Country: GB (occurrence: GB)
  Receive Date: 20160915
  Receipt Date: 20160915
  Transmission Date: 20161109
  Serious: Yes (Other)
  Sender: FDA-Public Use
  Company Number: GB-ROCHE-1830227

PATIENT
  Age: 79 Year
  Sex: Male
  Weight: 104.32 kg

DRUGS (16)
  1. TOCILIZUMAB [Suspect]
     Active Substance: TOCILIZUMAB
     Indication: RHEUMATOID ARTHRITIS
     Route: 042
     Dates: start: 20160617, end: 20160722
  2. DABIGATRAN [Concomitant]
     Active Substance: DABIGATRAN
     Route: 065
  3. DOXAZOSIN [Concomitant]
     Active Substance: DOXAZOSIN\DOXAZOSIN MESYLATE
     Route: 065
  4. ATORVASTATIN [Concomitant]
     Active Substance: ATORVASTATIN
     Route: 065
  5. ISOCARBOXAZID [Concomitant]
     Active Substance: ISOCARBOXAZID
     Route: 065
  6. PREDNISOLONE. [Concomitant]
     Active Substance: PREDNISOLONE
     Route: 065
  7. LISINOPRIL. [Concomitant]
     Active Substance: LISINOPRIL
     Route: 065
  8. QUININE SULPHATE [Concomitant]
     Active Substance: QUININE SULFATE
     Route: 065
  9. BISOPROLOL [Concomitant]
     Active Substance: BISOPROLOL
     Route: 065
  10. OMEPRAZOL [Concomitant]
     Active Substance: OMEPRAZOLE
     Route: 065
  11. ASPIRIN. [Concomitant]
     Active Substance: ASPIRIN
     Route: 065
  12. EPLERENONE. [Concomitant]
     Active Substance: EPLERENONE
     Route: 065
  13. METFORMIN [Concomitant]
     Active Substance: METFORMIN HYDROCHLORIDE
     Route: 065
  14. BENDROFLUMETHIAZID [Concomitant]
     Route: 065
  15. BUMETANIDE. [Concomitant]
     Active Substance: BUMETANIDE
     Route: 065
  16. IRON SULPHATE [Concomitant]
     Active Substance: FERROUS SULFATE ANHYDROUS
     Route: 065

REACTIONS (4)
  - Arthritis [Recovered/Resolved with Sequelae]
  - Haemoptysis [Recovered/Resolved with Sequelae]
  - Pruritus [Recovered/Resolved with Sequelae]
  - Rash macular [Recovered/Resolved with Sequelae]

NARRATIVE: CASE EVENT DATE: 20160617
